FAERS Safety Report 13755109 (Version 2)
Quarter: 2017Q3

REPORT INFORMATION
  Report Type: Report from Study
  Country: US (occurrence: US)
  Receive Date: 20170714
  Receipt Date: 20170719
  Transmission Date: 20171127
  Serious: Yes (Death)
  Sender: FDA-Public Use
  Company Number: US-ASTELLAS-2017US027652

PATIENT
  Age: 63 Year
  Sex: Male

DRUGS (4)
  1. ERIVEDGE [Suspect]
     Active Substance: VISMODEGIB
     Indication: BILE DUCT CANCER
  2. ERLOTINIB [Suspect]
     Active Substance: ERLOTINIB
     Indication: HEPATIC CANCER
  3. ERIVEDGE [Suspect]
     Active Substance: VISMODEGIB
     Indication: CHOLANGIOCARCINOMA
     Dosage: UNK UNK, ONCE DAILY
     Route: 048
     Dates: start: 201703, end: 20170517
  4. ERLOTINIB [Suspect]
     Active Substance: ERLOTINIB
     Indication: CHOLANGIOCARCINOMA
     Dosage: UNK UNK, UNKNOWN FREQ.
     Route: 065

REACTIONS (5)
  - Death [Fatal]
  - Lethargy [Not Recovered/Not Resolved]
  - Off label use [Fatal]
  - Decreased appetite [Not Recovered/Not Resolved]
  - Intentional product use issue [Fatal]

NARRATIVE: CASE EVENT DATE: 20170614
